FAERS Safety Report 5464215-6 (Version None)
Quarter: 2007Q3

REPORT INFORMATION
  Report Type: 
  Country: None (occurrence: None)
  Receive Date: 20070921
  Receipt Date: 20070918
  Transmission Date: 20080115
  Serious: Yes (Other)
  Sender: FDA-Public Use
  Company Number: DE-BRISTOL-MYERS SQUIBB COMPANY-13913074

PATIENT
  Age: 60 Year
  Sex: Female
  Weight: 38 kg

DRUGS (1)
  1. VEPESID [Suspect]
     Indication: BRONCHIAL CARCINOMA
     Route: 042
     Dates: start: 20070822

REACTIONS (6)
  - BRONCHIAL OBSTRUCTION [None]
  - DYSPNOEA [None]
  - ERYTHEMA [None]
  - FEELING HOT [None]
  - OXYGEN SATURATION DECREASED [None]
  - SINUS TACHYCARDIA [None]
